FAERS Safety Report 8506348-3 (Version None)
Quarter: 2012Q3

REPORT INFORMATION
  Report Type: 
  Country: None (occurrence: None)
  Receive Date: 20120712
  Receipt Date: 20101220
  Transmission Date: 20120928
  Serious: Yes (Death)
  Sender: FDA-Public Use
  Company Number: US-ROCHE-1086642

PATIENT
  Sex: Female

DRUGS (7)
  1. ACTEMRA [Suspect]
     Indication: RHEUMATOID ARTHRITIS
     Route: 042
     Dates: start: 20100602, end: 20100810
  2. PRILOSEC [Concomitant]
  3. TYLOX [Concomitant]
  4. FLORINEF [Concomitant]
  5. TRAZODONE HYDROCHLORIDE [Concomitant]
  6. TOPAMAX [Concomitant]
  7. ROBAXISAL [Concomitant]

REACTIONS (2)
  - DEATH [None]
  - ILL-DEFINED DISORDER [None]
